FAERS Safety Report 11794960 (Version 1)
Quarter: 2015Q4

REPORT INFORMATION
  Report Type: Spontaneous
  Country: DE (occurrence: DE)
  Receive Date: 20151202
  Receipt Date: 20151202
  Transmission Date: 20160305
  Serious: Yes (Other)
  Sender: FDA-Public Use
  Company Number: DE-TEVA-611918GER

PATIENT
  Age: 0 Year
  Sex: Male

DRUGS (2)
  1. LAMOTRIGIN [Suspect]
     Active Substance: LAMOTRIGINE
     Indication: EPILEPSY
     Route: 063
  2. KEPPRA [Suspect]
     Active Substance: LEVETIRACETAM
     Indication: EPILEPSY
     Route: 063

REACTIONS (3)
  - Loss of consciousness [Recovered/Resolved]
  - Exposure during pregnancy [Unknown]
  - Exposure during breast feeding [Unknown]
